FAERS Safety Report 16087958 (Version 1)
Quarter: 2019Q1

REPORT INFORMATION
  Report Type: Spontaneous
  Country: US (occurrence: US)
  Receive Date: 20190319
  Receipt Date: 20190319
  Transmission Date: 20190418
  Serious: No
  Sender: FDA-Public Use
  Company Number: US-ASTRAZENECA-2019SE38751

PATIENT
  Sex: Female

DRUGS (21)
  1. LISINOPRIL. [Suspect]
     Active Substance: LISINOPRIL
     Route: 048
  2. ZOFRAN-ODT [Concomitant]
  3. COZAAR [Concomitant]
     Active Substance: LOSARTAN POTASSIUM
  4. MYCOSTATIN [Concomitant]
     Active Substance: NYSTATIN
  5. PREMARIN [Concomitant]
     Active Substance: ESTROGENS, CONJUGATED
  6. OMEPRAZOLE. [Suspect]
     Active Substance: OMEPRAZOLE
     Route: 048
  7. PROVENTIL [Concomitant]
     Active Substance: ALBUTEROL
  8. AMARYL [Concomitant]
     Active Substance: GLIMEPIRIDE
  9. BACTROBAN [Concomitant]
     Active Substance: MUPIROCIN\MUPIROCIN CALCIUM
  10. WELLBUTRIN [Concomitant]
     Active Substance: BUPROPION HYDROCHLORIDE
  11. ANTIVERT [Concomitant]
     Active Substance: MECLIZINE HYDROCHLORIDE
  12. CALCIUM 600/VITAMIN D [Concomitant]
  13. CLARITIN [Concomitant]
     Active Substance: LORATADINE
  14. LYRICA [Concomitant]
     Active Substance: PREGABALIN
  15. ADVAIR DISKUS [Concomitant]
     Active Substance: FLUTICASONE PROPIONATE\SALMETEROL XINAFOATE
  16. GLUCOPHAGE [Concomitant]
     Active Substance: METFORMIN HYDROCHLORIDE
  17. NORVASC [Concomitant]
     Active Substance: AMLODIPINE BESYLATE
  18. ATENOLOL. [Suspect]
     Active Substance: ATENOLOL
     Route: 048
  19. PROAIR HFA [Concomitant]
     Active Substance: ALBUTEROL SULFATE
  20. FLONASE [Concomitant]
     Active Substance: FLUTICASONE PROPIONATE
  21. SPIRIVA RESPIMAT [Concomitant]
     Active Substance: TIOTROPIUM BROMIDE

REACTIONS (3)
  - Nasopharyngitis [Unknown]
  - Migraine [Unknown]
  - Mood altered [Unknown]
